FAERS Safety Report 24165849 (Version 2)
Quarter: 2025Q1

REPORT INFORMATION
  Report Type: Spontaneous
  Country: US (occurrence: US)
  Receive Date: 20240802
  Receipt Date: 20250225
  Transmission Date: 20250409
  Serious: Yes (Other)
  Sender: AUROBINDO
  Company Number: US-AUROBINDO-AUR-APL-2024-037733

PATIENT
  Age: 32 Year

DRUGS (1)
  1. BUPROPION HYDROCHLORIDE [Suspect]
     Active Substance: BUPROPION HYDROCHLORIDE
     Indication: Product used for unknown indication
     Route: 065

REACTIONS (6)
  - Cardiogenic shock [Unknown]
  - Seizure [Unknown]
  - Ventricular arrhythmia [Unknown]
  - Mental status changes [Unknown]
  - Intentional overdose [Unknown]
  - Toxicity to various agents [Unknown]
